FAERS Safety Report 5499928-3 (Version None)
Quarter: 2007Q4

REPORT INFORMATION
  Report Type: 
  Country: None (occurrence: None)
  Receive Date: 20071026
  Receipt Date: 20071015
  Transmission Date: 20080405
  Serious: Yes (Other)
  Sender: FDA-Public Use
  Company Number: GB-PFIZER INC-2007088001

PATIENT
  Age: 51 Year
  Sex: Female
  Weight: 79 kg

DRUGS (9)
  1. CHAMPIX [Suspect]
     Route: 048
  2. ASCORBIC ACID [Concomitant]
  3. CITALOPRAM HYDROBROMIDE [Concomitant]
  4. DIHYDROCODEINE BITARTRATE INJ [Concomitant]
  5. PARACETAMOL [Concomitant]
  6. QVAR 40 [Concomitant]
  7. SALMETEROL [Concomitant]
  8. SALBUTAMOL [Concomitant]
  9. ZOLPIDEM TARTRATE [Concomitant]

REACTIONS (4)
  - ALOPECIA [None]
  - DEPRESSION [None]
  - LETHARGY [None]
  - PARANOIA [None]
